FAERS Safety Report 9531009 (Version 1)
Quarter: 2013Q3

REPORT INFORMATION
  Report Type: Spontaneous
  Country: US (occurrence: None)
  Receive Date: 20130916
  Receipt Date: 20130916
  Transmission Date: 20140515
  Serious: No
  Sender: FDA-Public Use
  Company Number: None

PATIENT
  Age: 74 Year
  Sex: Male
  Weight: 80.29 kg

DRUGS (1)
  1. LIPITOR [Suspect]

REACTIONS (2)
  - Myalgia [None]
  - Muscle strain [None]
